FAERS Safety Report 6556455-X (Version None)
Quarter: 2010Q1

REPORT INFORMATION
  Report Type: 
  Country: None (occurrence: None)
  Receive Date: 20100128
  Receipt Date: 20100119
  Transmission Date: 20100710
  Serious: Yes (Hospitalization)
  Sender: FDA-Public Use
  Company Number: FR-PFIZER INC-2010007029

PATIENT
  Age: 70 Year
  Sex: Male

DRUGS (7)
  1. TAHOR [Suspect]
     Dosage: 20 MG, 1X/DAY
     Route: 048
     Dates: start: 20020101, end: 20091016
  2. KETOPROFEN ^RATIOPHARM^ [Suspect]
     Indication: ARTHRALGIA
     Dosage: UNK
     Route: 061
     Dates: end: 20091013
  3. ALLOPURINOL [Suspect]
     Dosage: 100 MG, 1X/DAY
     Route: 048
     Dates: start: 20030101, end: 20091016
  4. PERMIXON [Suspect]
     Dosage: 2 DF, 1X/DAY
     Route: 048
     Dates: start: 20070101, end: 20091016
  5. TRIMEBUTINE MALEATE [Concomitant]
     Dosage: UNK
  6. TRANSIPEG [Concomitant]
     Dosage: UNK
  7. FORLAX [Concomitant]
     Dosage: UNK

REACTIONS (1)
  - DRUG ERUPTION [None]
